FAERS Safety Report 24198744 (Version 2)
Quarter: 2024Q3

REPORT INFORMATION
  Report Type: Report from Study
  Country: US (occurrence: US)
  Receive Date: 20240812
  Receipt Date: 20240903
  Transmission Date: 20241017
  Serious: Yes (Hospitalization)
  Sender: ABBVIE
  Company Number: US-ABBVIE-5873942

PATIENT
  Sex: Female

DRUGS (2)
  1. HUMIRA [Suspect]
     Active Substance: ADALIMUMAB
     Indication: Psoriasis
     Dosage: CITRATE FREE?LAST ADMIN DATE2024
     Route: 058
     Dates: start: 20240515
  2. HUMIRA [Suspect]
     Active Substance: ADALIMUMAB
     Route: 058
     Dates: start: 20240604

REACTIONS (7)
  - Shock [Unknown]
  - Sepsis [Unknown]
  - Diarrhoea [Unknown]
  - Dehydration [Unknown]
  - Pneumonia bacterial [Unknown]
  - Skin erosion [Unknown]
  - Clostridium difficile infection [Recovered/Resolved]

NARRATIVE: CASE EVENT DATE: 20240101
